FAERS Safety Report 8143320-X (Version None)
Quarter: 2012Q1

REPORT INFORMATION
  Report Type: 
  Country: None (occurrence: None)
  Receive Date: 20120217
  Receipt Date: 20120213
  Transmission Date: 20120608
  Serious: Yes (Hospitalization, Other)
  Sender: FDA-Public Use
  Company Number: US-PFIZER INC-2011314952

PATIENT
  Sex: Female

DRUGS (6)
  1. REVATIO [Suspect]
     Dosage: FOR 7 DAYS
     Dates: end: 20111026
  2. AMBRISENTAN [Concomitant]
     Dosage: 10 MG, 1X/DAY
  3. REVATIO [Suspect]
     Indication: PULMONARY HYPERTENSION
     Dosage: 20 MG, 3X/DAY
     Dates: start: 20100430
  4. LOPRESSOR [Concomitant]
     Dosage: 50 MG, 2X/DAY
  5. VENTAVIS [Concomitant]
     Dosage: 20 MG/ML, 9X/DAY
  6. REVATIO [Suspect]
     Dosage: 1 TID
     Route: 048
     Dates: end: 20111213

REACTIONS (4)
  - TACHYCARDIA [None]
  - CARDIAC DISORDER [None]
  - DYSPNOEA [None]
  - HEART RATE INCREASED [None]
